FAERS Safety Report 4280940-7 (Version None)
Quarter: 2004Q1

REPORT INFORMATION
  Report Type: 
  Country: None (occurrence: None)
  Receive Date: 20040127
  Receipt Date: 20040113
  Transmission Date: 20041129
  Serious: Yes (Hospitalization, Other)
  Sender: FDA-Public Use
  Company Number: NSADSS2003016278

PATIENT
  Sex: Male

DRUGS (8)
  1. REMICADE [Suspect]
     Indication: CROHN'S DISEASE
     Dosage: 1 IN 1 AS NECESSARY, INTRAVENOUS DRIP
     Route: 041
     Dates: start: 20001101, end: 20001101
  2. ULTRAM [Concomitant]
  3. IBUPROFEN [Concomitant]
  4. PENTASA [Concomitant]
  5. AZULFADINE (SULFASALAZINE) [Concomitant]
  6. PREVACID [Concomitant]
  7. MULTIVITAMIN [Concomitant]
  8. PREDNISONE [Concomitant]

REACTIONS (29)
  - ABDOMINAL PAIN [None]
  - ABDOMINAL PAIN LOWER [None]
  - ANTINUCLEAR ANTIBODY POSITIVE [None]
  - ARTHRALGIA [None]
  - BONE INFECTION [None]
  - CARPAL TUNNEL SYNDROME [None]
  - DISCOMFORT [None]
  - DYSPNOEA [None]
  - HYPERTENSION [None]
  - HYPOAESTHESIA [None]
  - INJURY [None]
  - JOINT SWELLING [None]
  - LETHARGY [None]
  - LUPUS-LIKE SYNDROME [None]
  - MALAISE [None]
  - METASTATIC RENAL CELL CARCINOMA [None]
  - NEPHROLITHIASIS [None]
  - OEDEMA PERIPHERAL [None]
  - PAIN [None]
  - PARAESTHESIA [None]
  - PERICARDIAL EFFUSION [None]
  - PERICARDITIS [None]
  - PLEURAL EFFUSION [None]
  - PROTEINURIA [None]
  - RENAL CYST [None]
  - RENAL FAILURE [None]
  - RENAL MASS [None]
  - VIRAL PHARYNGITIS [None]
  - WEIGHT INCREASED [None]
